FAERS Safety Report 23297066 (Version 1)
Quarter: 2023Q4

REPORT INFORMATION
  Report Type: Spontaneous
  Country: ES (occurrence: ES)
  Receive Date: 20231214
  Receipt Date: 20231214
  Transmission Date: 20240109
  Serious: Yes (Other)
  Sender: FDA-Public Use
  Company Number: None

PATIENT
  Age: 58 Year
  Sex: Female

DRUGS (5)
  1. RITUXIMAB [Suspect]
     Active Substance: RITUXIMAB
     Indication: Parkinsonism
     Dosage: UNK
     Route: 042
     Dates: start: 20230623, end: 20230623
  2. OMEPRAZOLE [Concomitant]
     Active Substance: OMEPRAZOLE
     Indication: Prophylaxis against gastrointestinal ulcer
     Route: 048
     Dates: start: 20230517
  3. KETOTIFEN [Concomitant]
     Active Substance: KETOTIFEN
     Indication: Conjunctivitis allergic
     Route: 047
     Dates: start: 20230517
  4. NASONEX [Concomitant]
     Active Substance: MOMETASONE FUROATE
     Indication: Nasal polyps
     Route: 055
     Dates: start: 20230517
  5. ZOMIG [Concomitant]
     Active Substance: ZOLMITRIPTAN
     Indication: Migraine
     Route: 048
     Dates: start: 20230517

REACTIONS (6)
  - Respiratory distress [Recovered/Resolved]
  - Anaphylactic reaction [Recovered/Resolved]
  - Cough [Recovered/Resolved]
  - Erythema [Recovered/Resolved]
  - Pruritus [Recovered/Resolved]
  - Off label use [Unknown]

NARRATIVE: CASE EVENT DATE: 20230623
